FAERS Safety Report 4912923-5 (Version None)
Quarter: 2006Q1

REPORT INFORMATION
  Report Type: 
  Country: None (occurrence: None)
  Receive Date: 20060215
  Receipt Date: 20060210
  Transmission Date: 20060701
  Serious: Yes (Other)
  Sender: FDA-Public Use
  Company Number: US-GLAXOSMITHKLINE-A0593199A

PATIENT
  Age: 32 Year
  Sex: Female

DRUGS (3)
  1. AQUAFRESH MULTI ACTION WHITENING TOOTHPASTE [Suspect]
     Indication: DENTAL CLEANING
     Dates: start: 20060101
  2. THYROID TAB [Concomitant]
  3. FIORINAL #3 [Concomitant]

REACTIONS (8)
  - DRUG EXPOSURE DURING PREGNANCY [None]
  - DRY SKIN [None]
  - ERYTHEMA [None]
  - MIGRAINE [None]
  - NAUSEA [None]
  - PHARMACEUTICAL PRODUCT COMPLAINT [None]
  - PSORIASIS [None]
  - SKIN IRRITATION [None]
